FAERS Safety Report 8495594-3 (Version None)
Quarter: 2012Q3

REPORT INFORMATION
  Report Type: 
  Country: None (occurrence: None)
  Receive Date: 20120709
  Receipt Date: 20120629
  Transmission Date: 20120928
  Serious: Yes (Hospitalization)
  Sender: FDA-Public Use
  Company Number: FR-ROCHE-1046527

PATIENT
  Sex: Female
  Weight: 45 kg

DRUGS (5)
  1. DEXAMETHASONE SODIUM POSPHATE [Suspect]
     Indication: MANTLE CELL LYMPHOMA
     Route: 042
     Dates: start: 20120202, end: 20120202
  2. MABTHERA [Suspect]
     Indication: MANTLE CELL LYMPHOMA
     Route: 041
     Dates: start: 20120201, end: 20120229
  3. BENDAMUSTINE HYDROCHLORIDE [Suspect]
     Indication: MANTLE CELL LYMPHOMA
     Dosage: STRENGTH: 2.5 MG/ML
     Route: 041
     Dates: start: 20120201, end: 20120229
  4. NEULASTA [Concomitant]
     Dates: start: 20120206
  5. BORTEZOMIB [Suspect]
     Indication: MANTLE CELL LYMPHOMA
     Dosage: ADMINISTERED ON DAY 1 AND DAY 4.
     Route: 058
     Dates: start: 20120201, end: 20120206

REACTIONS (1)
  - GENERALISED OEDEMA [None]
